FAERS Safety Report 12459349 (Version 1)
Quarter: 2016Q2

REPORT INFORMATION
  Report Type: Spontaneous
  Country: US (occurrence: None)
  Receive Date: 20160610
  Receipt Date: 20160610
  Transmission Date: 20160815
  Serious: Yes (Hospitalization)
  Sender: FDA-Public Use
  Company Number: None

PATIENT
  Age: 67 Year
  Sex: Female

DRUGS (25)
  1. KLONOPIN [Concomitant]
     Active Substance: CLONAZEPAM
  2. LETAIRIS [Concomitant]
     Active Substance: AMBRISENTAN
  3. ASPIRIN. [Concomitant]
     Active Substance: ASPIRIN
  4. LEVOCETIRIZI [Concomitant]
  5. METOPROLOL TARTRATE. [Concomitant]
     Active Substance: METOPROLOL TARTRATE
  6. MONTELUKAST [Concomitant]
     Active Substance: MONTELUKAST SODIUM
  7. PANTOPRAZOLE [Concomitant]
     Active Substance: PANTOPRAZOLE SODIUM
  8. ADCIRCA [Suspect]
     Active Substance: TADALAFIL
     Indication: PULMONARY ARTERIAL HYPERTENSION
     Route: 048
     Dates: start: 20150806
  9. FENOFIBRATE. [Concomitant]
     Active Substance: FENOFIBRATE
  10. SEROQUEL [Concomitant]
     Active Substance: QUETIAPINE FUMARATE
  11. DIGOXIN. [Concomitant]
     Active Substance: DIGOXIN
  12. VITAMIN D [Concomitant]
     Active Substance: CHOLECALCIFEROL
  13. PROAIR HFA [Concomitant]
     Active Substance: ALBUTEROL SULFATE
  14. PROGESTERONE. [Concomitant]
     Active Substance: PROGESTERONE
  15. SYMBICORT [Concomitant]
     Active Substance: BUDESONIDE\FORMOTEROL FUMARATE DIHYDRATE
  16. METFORMIN [Concomitant]
     Active Substance: METFORMIN HYDROCHLORIDE
  17. AMIODARONE [Concomitant]
     Active Substance: AMIODARONE
  18. AMITIZA [Concomitant]
     Active Substance: LUBIPROSTONE
  19. CALCIUM CARB [Concomitant]
  20. CELEXA [Concomitant]
     Active Substance: CITALOPRAM HYDROBROMIDE
  21. COUMADIN [Concomitant]
     Active Substance: WARFARIN SODIUM
  22. VITAMIN B [Concomitant]
     Active Substance: VITAMIN B
  23. ZANTAC [Concomitant]
     Active Substance: RANITIDINE HYDROCHLORIDE
  24. ROPINROLE [Concomitant]
  25. SPIRONOLACT [Concomitant]

REACTIONS (1)
  - Shoulder operation [None]

NARRATIVE: CASE EVENT DATE: 20160531
